FAERS Safety Report 8212426-9 (Version None)
Quarter: 2012Q1

REPORT INFORMATION
  Report Type: 
  Country: None (occurrence: None)
  Receive Date: 20120315
  Receipt Date: 20120307
  Transmission Date: 20120608
  Serious: Yes (Hospitalization)
  Sender: FDA-Public Use
  Company Number: US-BAYER-201037461NA

PATIENT
  Age: 23 Year
  Sex: Female
  Weight: 77.098 kg

DRUGS (11)
  1. YAZ [Suspect]
     Dosage: UNK
     Route: 048
     Dates: start: 20060926, end: 20070326
  2. DROSPIRENONE AND ETHINYL ESTRADIOL [Suspect]
     Dosage: UNK
     Route: 048
     Dates: start: 20060926, end: 20070326
  3. YASMIN [Suspect]
     Dosage: UNK
     Route: 048
     Dates: start: 20060926, end: 20070326
  4. COUMADIN [Concomitant]
     Indication: DEEP VEIN THROMBOSIS
  5. PROPYLTHIOURACIL [Concomitant]
  6. SYNTHROID [Concomitant]
  7. TAPAZOLE [Concomitant]
     Dosage: 5 MG, HS
  8. METHIMAZOLE [Concomitant]
  9. AZITHROMYCIN [Concomitant]
  10. TAPAZOLE [Concomitant]
     Indication: HYPERTHYROIDISM
     Dosage: 10 MG, OM
     Route: 048
  11. METRONIDAZOLE [Concomitant]

REACTIONS (4)
  - DEEP VEIN THROMBOSIS [None]
  - PAIN [None]
  - INJURY [None]
  - EMOTIONAL DISTRESS [None]
